FAERS Safety Report 4932302-4 (Version None)
Quarter: 2006Q1

REPORT INFORMATION
  Report Type: 
  Country: None (occurrence: None)
  Receive Date: 20060228
  Receipt Date: 20060217
  Transmission Date: 20060701
  Serious: Yes (Disabling)
  Sender: FDA-Public Use
  Company Number: SP-2006-002790

PATIENT
  Age: 83 Year
  Sex: Female

DRUGS (4)
  1. OLMETEC [Suspect]
     Indication: HYPERTENSION
     Dates: start: 20051209, end: 20060205
  2. PANTOPRAZOLE SODIUM [Concomitant]
  3. DIAMICRON [Concomitant]
  4. SELO-ZOK [Concomitant]

REACTIONS (5)
  - BACK PAIN [None]
  - DRUG WITHDRAWAL SYNDROME [None]
  - DYSPHAGIA [None]
  - PHARYNGOLARYNGEAL PAIN [None]
  - SPEECH DISORDER [None]
